FAERS Safety Report 17743172 (Version 1)
Quarter: 2020Q2

REPORT INFORMATION
  Report Type: Spontaneous
  Country: US (occurrence: US)
  Receive Date: 20200505
  Receipt Date: 20200505
  Transmission Date: 20200714
  Serious: No
  Sender: FDA-Public Use
  Company Number: US-ROCHE-2390160

PATIENT
  Sex: Male

DRUGS (17)
  1. ATORVASTATIN CALCIUM. [Concomitant]
     Active Substance: ATORVASTATIN CALCIUM
  2. CLONAZEPAM. [Concomitant]
     Active Substance: CLONAZEPAM
  3. GABAPENTIN. [Concomitant]
     Active Substance: GABAPENTIN
     Route: 048
  4. ASPIRIN [ACETYLSALICYLIC ACID] [Concomitant]
     Active Substance: ASPIRIN
     Route: 065
  5. FLUTICASONE PROPIONATE. [Concomitant]
     Active Substance: FLUTICASONE PROPIONATE
  6. TYLENOL [Concomitant]
     Active Substance: ACETAMINOPHEN
  7. ESBRIET [Suspect]
     Active Substance: PIRFENIDONE
     Indication: PULMONARY FIBROSIS
     Dosage: FOR ONE WEEK
     Route: 048
     Dates: start: 20190815
  8. PREDNISONE. [Concomitant]
     Active Substance: PREDNISONE
     Route: 048
  9. TIMOLOL MALEATE. [Concomitant]
     Active Substance: TIMOLOL MALEATE
  10. ESBRIET [Suspect]
     Active Substance: PIRFENIDONE
     Dosage: FOR ONE WEEK
     Route: 048
     Dates: start: 20190815
  11. BUSPIRONE HCL [Concomitant]
     Active Substance: BUSPIRONE HYDROCHLORIDE
  12. CALCIUM+D [Concomitant]
     Active Substance: CALCIUM\VITAMIN D
  13. METHYLPHENIDATE HYDROCHLORIDE. [Concomitant]
     Active Substance: METHYLPHENIDATE HYDROCHLORIDE
  14. ROCKLATAN [Concomitant]
     Active Substance: LATANOPROST\NETARSUDIL MESYLATE
  15. ZYRTEC [Concomitant]
     Active Substance: CETIRIZINE HYDROCHLORIDE
  16. FISH OIL [Concomitant]
     Active Substance: FISH OIL
  17. ESBRIET [Suspect]
     Active Substance: PIRFENIDONE
     Dosage: FOR ONE WEEK
     Route: 048
     Dates: start: 20190815

REACTIONS (5)
  - Fatigue [Not Recovered/Not Resolved]
  - Hypersomnia [Not Recovered/Not Resolved]
  - Cough [Not Recovered/Not Resolved]
  - Decreased appetite [Not Recovered/Not Resolved]
  - Dyspnoea exertional [Not Recovered/Not Resolved]
